APPROVED DRUG PRODUCT: TREZIX
Active Ingredient: ACETAMINOPHEN; CAFFEINE; DIHYDROCODEINE BITARTRATE
Strength: 320.5MG;30MG;16MG
Dosage Form/Route: CAPSULE;ORAL
Application: A204785 | Product #001
Applicant: KEY THERAPEUTICS LLC
Approved: Nov 26, 2014 | RLD: No | RS: No | Type: DISCN